FAERS Safety Report 9632502 (Version 2)
Quarter: 2013Q4

REPORT INFORMATION
  Report Type: Report from Study
  Country: CN (occurrence: CN)
  Receive Date: 20131018
  Receipt Date: 20131018
  Transmission Date: 20140711
  Serious: Yes (Death, Life-Threatening, Hospitalization, Other)
  Sender: FDA-Public Use
  Company Number: CN-ABBVIE-13P-035-1043032-00

PATIENT
  Age: 38 Year
  Sex: Male
  Weight: 68 kg

DRUGS (16)
  1. HUMIRA [Suspect]
     Indication: PSORIASIS
     Route: 058
     Dates: start: 20121008, end: 20130121
  2. AMBROXOL [Concomitant]
     Indication: INCREASED UPPER AIRWAY SECRETION
     Route: 041
     Dates: start: 20130127, end: 20130129
  3. LEVOFLOXACIN LACTATE [Concomitant]
     Indication: INFECTION PROPHYLAXIS
     Route: 041
     Dates: start: 20130127, end: 20130129
  4. SHENMAI INJECTION (CHINESE PATENT MEDICINE) [Concomitant]
     Indication: CARDIOVASCULAR DISORDER
     Route: 041
     Dates: start: 20130128, end: 20130129
  5. CEFATHIAMIDINE [Concomitant]
     Indication: INFECTION PROPHYLAXIS
     Route: 041
     Dates: start: 20130128, end: 20130129
  6. VITAMIN C [Concomitant]
     Indication: VITAMIN SUPPLEMENTATION
     Route: 048
     Dates: start: 20130128, end: 20130128
  7. AZITHROMYCIN [Concomitant]
     Indication: INFECTION PROPHYLAXIS
     Route: 041
     Dates: start: 20130127, end: 20130127
  8. METHYLPREDNISOLONE SODIUM SUCCINATE [Concomitant]
     Indication: ANTIINFLAMMATORY THERAPY
     Route: 042
     Dates: start: 20130128, end: 20130128
  9. BROMHEXINE HYDROCHORIDE AND GLUCOSE [Concomitant]
     Indication: INCREASED UPPER AIRWAY SECRETION
     Route: 041
     Dates: start: 20130127, end: 20130129
  10. DIPROPHYLLINE [Concomitant]
     Indication: ASTHMA
     Route: 050
     Dates: start: 20130128, end: 20130128
  11. DIPROPHYLLINE [Concomitant]
     Indication: PROPHYLAXIS
  12. CEFIZOXIME SODIUM [Concomitant]
     Indication: INFECTION PROPHYLAXIS
     Route: 041
     Dates: start: 20130128, end: 20130128
  13. FUROSEMIDE [Concomitant]
     Indication: POLYURIA
     Route: 042
     Dates: start: 20130128, end: 20130128
  14. SHENMAI ZHUSHEYE (TCM) [Concomitant]
     Indication: CARDIOVASCULAR EVENT PROPHYLAXIS
     Route: 041
     Dates: start: 20130128, end: 20130128
  15. POTASSIUM CITRATE [Concomitant]
     Indication: HYPOKALAEMIA
     Route: 048
     Dates: start: 20130128, end: 20130128
  16. POTASSIUM CITRATE [Concomitant]
     Indication: PROPHYLAXIS

REACTIONS (4)
  - Cardiac failure congestive [Fatal]
  - Myocarditis [Unknown]
  - Lung infection [Unknown]
  - Arrhythmia [Unknown]
